FAERS Safety Report 6267873-1 (Version None)
Quarter: 2009Q3

REPORT INFORMATION
  Report Type: 
  Country: None (occurrence: None)
  Receive Date: 20090714
  Receipt Date: 20090708
  Transmission Date: 20100115
  Serious: Yes (Other)
  Sender: FDA-Public Use
  Company Number: US-ABBOTT-09P-163-0584096-00

PATIENT
  Sex: Male
  Weight: 81.72 kg

DRUGS (7)
  1. KALETRA [Suspect]
     Indication: HIV INFECTION
     Dosage: 50/200
     Dates: start: 20080101
  2. TRUVADA [Concomitant]
     Indication: HIV INFECTION
  3. SULFAMETHOXAZOLE [Concomitant]
     Indication: HIV INFECTION
  4. MULTIPLE VITAMINS [Concomitant]
     Indication: ROUTINE HEALTH MAINTENANCE
  5. VITAMIN B-12 [Concomitant]
     Indication: ROUTINE HEALTH MAINTENANCE
  6. VITAMIN B6 [Concomitant]
     Indication: ROUTINE HEALTH MAINTENANCE
  7. COCAINE [Concomitant]
     Indication: DRUG ABUSE
     Dates: start: 20090601, end: 20090601

REACTIONS (3)
  - DRUG ABUSE [None]
  - TREATMENT NONCOMPLIANCE [None]
  - WEIGHT DECREASED [None]
